FAERS Safety Report 7687935-1 (Version None)
Quarter: 2011Q3

REPORT INFORMATION
  Report Type: 
  Country: None (occurrence: None)
  Receive Date: 20110816
  Receipt Date: 20110816
  Transmission Date: 20111222
  Serious: Yes (Hospitalization)
  Sender: FDA-Public Use
  Company Number: None

PATIENT
  Sex: Female
  Weight: 50.5 kg

DRUGS (1)
  1. DOCETAXEL [Suspect]
     Dosage: 110 MG
     Dates: end: 20110803

REACTIONS (5)
  - DIARRHOEA [None]
  - CLOSTRIDIUM TEST POSITIVE [None]
  - SPUTUM DISCOLOURED [None]
  - FEBRILE NEUTROPENIA [None]
  - PRODUCTIVE COUGH [None]
